FAERS Safety Report 6742221-9 (Version None)
Quarter: 2010Q2

REPORT INFORMATION
  Report Type: 
  Country: None (occurrence: None)
  Receive Date: 20100526
  Receipt Date: 20100525
  Transmission Date: 20101027
  Serious: Yes (Life-Threatening, Hospitalization, Other)
  Sender: FDA-Public Use
  Company Number: GXKR2010DE05691

PATIENT
  Age: 44 Year
  Sex: Male
  Weight: 87 kg

DRUGS (5)
  1. COTRIMHEXAL FORTE (NGX) [Suspect]
     Dosage: 480 MG, QW2
     Route: 048
     Dates: start: 20100104
  2. COTRIMHEXAL FORTE (NGX) [Suspect]
     Dosage: 960 MG, QD
     Dates: start: 20070101, end: 20100103
  3. TERLIPRESSIN [Suspect]
     Dosage: 1 MG, QD
     Route: 042
     Dates: start: 20100217, end: 20100218
  4. L-POLAMIDON [Suspect]
     Dosage: 60 MG, QD
     Route: 048
     Dates: start: 20100205, end: 20100218
  5. L-POLAMIDON [Suspect]
     Dosage: 60 MG, QD
     Dates: start: 20100305

REACTIONS (1)
  - LONG QT SYNDROME [None]
